FAERS Safety Report 10035269 (Version 1)
Quarter: 2014Q1

REPORT INFORMATION
  Report Type: Spontaneous
  Country: DE (occurrence: DE)
  Receive Date: 20140325
  Receipt Date: 20140325
  Transmission Date: 20141002
  Serious: Yes (Other)
  Sender: FDA-Public Use
  Company Number: DE-B.I. PHARMACEUTICALS,INC./RIDGEFIELD-2014-BI-12561DE

PATIENT
  Age: 76 Year
  Sex: Male
  Weight: 81 kg

DRUGS (5)
  1. PRADAXA [Suspect]
     Indication: PRODUCT USED FOR UNKNOWN INDICATION
     Dosage: 220 MG
     Route: 065
  2. BETA BLOCKNIG AGENTS [Concomitant]
     Route: 065
  3. BENAZAPRIL [Concomitant]
     Route: 065
  4. PANTOZOL [Concomitant]
     Route: 065
  5. MIRTAZAPIN [Concomitant]
     Route: 065

REACTIONS (1)
  - Cerebral infarction [Unknown]
